FAERS Safety Report 14511962 (Version 2)
Quarter: 2018Q2

REPORT INFORMATION
  Report Type: Spontaneous
  Country: FR (occurrence: FR)
  Receive Date: 20180209
  Receipt Date: 20180409
  Transmission Date: 20180711
  Serious: Yes (Life-Threatening, Hospitalization, Other)
  Sender: FDA-Public Use
  Company Number: FR-JNJFOC-20180202830

PATIENT
  Age: 56 Year
  Sex: Female
  Weight: 118 kg

DRUGS (14)
  1. CHONDROSULF [Concomitant]
     Active Substance: CHONDROITIN SULFATE (CHICKEN)
     Indication: OSTEOARTHRITIS
     Dosage: EVERY EVENING IN 1 INTAKE
     Route: 048
  2. MIRTAZAPIN [Concomitant]
     Active Substance: MIRTAZAPINE
     Indication: DEPRESSION
     Dosage: EVERY EVENING IN 1 INTAKE
     Route: 048
     Dates: start: 20140403
  3. APRANAX [Concomitant]
     Active Substance: NAPROXEN
     Indication: PAIN
     Dosage: ON MORNING AND EVENING DURING MEALS FOR 5 DAYS
     Route: 048
     Dates: start: 20140402, end: 20140416
  4. DAFALGAN [Concomitant]
     Active Substance: ACETAMINOPHEN
     Dosage: 1 TABLET ON MORNING, MIDDAY, 18:00 AND BEDTIME
     Route: 065
  5. ATARAX [Concomitant]
     Active Substance: HYDROXYZINE HYDROCHLORIDE
     Indication: ANXIETY
     Dosage: ON EVENING
     Route: 048
  6. TEMESTA (LORAZEPAM) [Concomitant]
     Active Substance: LORAZEPAM
     Indication: ANXIETY
     Dosage: 2.5 MG ON MORNING AND MIDDAY; AT BEDTIME
     Route: 048
  7. INORIAL [Concomitant]
     Active Substance: BILASTINE
     Dosage: 1 TABLET ON MORNING, MIDDAY, 18:00 AND BEDTIME
     Route: 065
  8. HALDOL DECANOAS [Suspect]
     Active Substance: HALOPERIDOL DECANOATE
     Indication: SCHIZOPHRENIA
     Route: 030
     Dates: end: 20140411
  9. TEMESTA (LORAZEPAM) [Concomitant]
     Active Substance: LORAZEPAM
     Indication: ANXIETY
     Dosage: ON EVENING; 1 MG
     Route: 048
  10. AKINETON [Concomitant]
     Active Substance: BIPERIDEN HYDROCHLORIDE
     Indication: PROPHYLAXIS
     Dosage: 1 TABLET ON MORNING AND MIDDAY
     Route: 048
  11. RHUS TOXICODENDRON [Concomitant]
     Dosage: ON MORNING, MIDDAY, 18:00 AND BEDTIME DURING 7; 3 GRANULES ON MORNING, MIDDAY AND EVENING DURING 14
     Route: 065
  12. INNOVAIR [Concomitant]
     Active Substance: BECLOMETHASONE DIPROPIONATE\FORMOTEROL
     Dosage: 2 PUFFS ON MORNING AND EVENING
     Route: 065
  13. CODEIN [Concomitant]
     Active Substance: CODEINE
     Indication: PAIN
     Dosage: 1 ON MORNING, MIDDAY, AT 17:00 AND 2 TABLETS AT BEDTIME
     Route: 048
     Dates: start: 20140402, end: 20140416
  14. RHINOMAXIL [Concomitant]
     Active Substance: BECLOMETHASONE DIPROPIONATE
     Dosage: 1 SPRAY 3 TIMES A DAY IN EACH NOSTRIL
     Route: 045

REACTIONS (1)
  - Myocardial infarction [Recovered/Resolved]

NARRATIVE: CASE EVENT DATE: 20140426
